FAERS Safety Report 13546830 (Version 1)
Quarter: 2017Q2

REPORT INFORMATION
  Report Type: Spontaneous
  Country: US (occurrence: US)
  Receive Date: 20170515
  Receipt Date: 20170515
  Transmission Date: 20170830
  Serious: No
  Sender: FDA-Public Use
  Company Number: None

PATIENT
  Age: 73 Year
  Sex: Female

DRUGS (1)
  1. CYCLOPHOSPHAMIDE CAP 50MG [Suspect]
     Active Substance: CYCLOPHOSPHAMIDE
     Route: 048

REACTIONS (7)
  - Skin burning sensation [None]
  - Increased tendency to bruise [None]
  - Skin atrophy [None]
  - Rash [None]
  - Pruritus [None]
  - Haemorrhage [None]
  - Erythema [None]

NARRATIVE: CASE EVENT DATE: 20170515
